FAERS Safety Report 18526557 (Version 2)
Quarter: 2020Q4

REPORT INFORMATION
  Report Type: Spontaneous
  Country: GB (occurrence: GB)
  Receive Date: 20201120
  Receipt Date: 20201125
  Transmission Date: 20210114
  Serious: Yes (Other)
  Sender: FDA-Public Use
  Company Number: GB-PFIZER INC-2020453844

PATIENT
  Age: 58 Year

DRUGS (8)
  1. HYDRALAZINE [Concomitant]
     Active Substance: HYDRALAZINE HYDROCHLORIDE
     Dosage: 50 MG, 3X/DAY
     Route: 048
  2. PREDNISONE. [Concomitant]
     Active Substance: PREDNISONE
     Dosage: 12.5 MG, 1X/DAY
     Route: 048
  3. CIPROFLOXACIN HCL [Suspect]
     Active Substance: CIPROFLOXACIN HYDROCHLORIDE
     Dosage: 750 MG, 3X/DAY (EVERY 8 HOURS)
     Route: 048
  4. METRONIDAZOLE. [Concomitant]
     Active Substance: METRONIDAZOLE
     Dosage: 500 MG, EVERY 6 HOURS
     Route: 048
  5. DIPYRIDAMOLE. [Concomitant]
     Active Substance: DIPYRIDAMOLE
     Dosage: 75 MG, 3X/DAY
     Route: 048
  6. CICLOSPORIN [Interacting]
     Active Substance: CYCLOSPORINE
     Dosage: 160 MG, 2X/DAY
     Route: 048
  7. CICLOSPORIN [Interacting]
     Active Substance: CYCLOSPORINE
     Dosage: 4.0 TO 4.7 MG/KG/DAY
  8. WARFARIN [Concomitant]
     Active Substance: WARFARIN
     Dosage: 5 MG, 1X/DAY
     Route: 048

REACTIONS (3)
  - Nephropathy toxic [Unknown]
  - Drug interaction [Unknown]
  - Acute kidney injury [Unknown]
